FAERS Safety Report 7595684-3 (Version None)
Quarter: 2011Q3

REPORT INFORMATION
  Report Type: 
  Country: None (occurrence: None)
  Receive Date: 20110707
  Receipt Date: 20110703
  Transmission Date: 20111222
  Serious: No
  Sender: FDA-Public Use
  Company Number: US-TEVA-289443USA

PATIENT
  Sex: Female

DRUGS (3)
  1. ZOLOFT [Concomitant]
     Indication: BIPOLAR DISORDER
  2. LAMICTAL [Concomitant]
     Indication: BIPOLAR DISORDER
  3. PLAN B ONE-STEP [Suspect]
     Indication: POST COITAL CONTRACEPTION
     Dosage: 1.5 MILLIGRAM;
     Route: 048

REACTIONS (4)
  - ABDOMINAL PAIN LOWER [None]
  - DIZZINESS [None]
  - NAUSEA [None]
  - FATIGUE [None]
